FAERS Safety Report 8766668 (Version 2)
Quarter: 2012Q4

REPORT INFORMATION
  Report Type: 
  Country: US (occurrence: US)
  Receive Date: 20120904
  Receipt Date: 20121125
  Transmission Date: 20130627
  Serious: Yes (Other)
  Sender: FDA-Public Use
  Company Number: US-BAYER-2012-089554

PATIENT
  Age: 38 Year
  Sex: Female
  Weight: 68.48 kg

DRUGS (5)
  1. MIRENA [Suspect]
     Indication: CONTRACEPTION
     Dosage: 20 mcg/24hr, CONT
     Route: 015
     Dates: start: 200705, end: 20120504
  2. MIRENA [Suspect]
     Indication: CONTRACEPTION
     Dosage: 20 mcg/24hr, CONT
     Route: 015
     Dates: start: 20120525, end: 20120831
  3. FLAXSEED OIL [Concomitant]
     Dosage: 1000 mg, ONCE
     Route: 048
  4. OTHER CHOLESTEROL AND TRIGLYCERIDE REDUCERS [Concomitant]
     Dosage: 500 mg, ONCE
     Route: 048
  5. OTHER CHOLESTEROL AND TRIGLYCERIDE REDUCERS [Concomitant]
     Dosage: 100 mg, ONCE
     Route: 048

REACTIONS (10)
  - Convulsions local [None]
  - Trigeminal neuralgia [None]
  - Migraine [None]
  - Dysphagia [None]
  - Excessive eye blinking [None]
  - Muscle contracture [None]
  - Headache [None]
  - Tic [None]
  - Dyskinesia [None]
  - Vision blurred [None]
